FAERS Safety Report 8036844-7 (Version None)
Quarter: 2012Q1

REPORT INFORMATION
  Report Type: 
  Country: None (occurrence: None)
  Receive Date: 20120111
  Receipt Date: 20120105
  Transmission Date: 20120608
  Serious: No
  Sender: FDA-Public Use
  Company Number: US-PFIZER INC-2012004697

PATIENT
  Sex: Female
  Weight: 65.76 kg

DRUGS (1)
  1. PRISTIQ [Suspect]
     Indication: DEPRESSION
     Dosage: 50 MG, 1X/DAY
     Dates: start: 20111230

REACTIONS (2)
  - ABDOMINAL DISTENSION [None]
  - URINARY INCONTINENCE [None]
